FAERS Safety Report 21064614 (Version 1)
Quarter: 2022Q3

REPORT INFORMATION
  Report Type: Report from Study
  Country: MX (occurrence: MX)
  Receive Date: 20220711
  Receipt Date: 20220711
  Transmission Date: 20221027
  Serious: Yes (Other)
  Sender: FDA-Public Use
  Company Number: MX-PFIZER INC-2020176960

PATIENT
  Age: 12 Year
  Sex: Female
  Weight: 52 kg

DRUGS (4)
  1. ABROCITINIB [Suspect]
     Active Substance: ABROCITINIB
     Indication: Dermatitis atopic
     Dosage: 100 MG, DAILY
     Route: 048
     Dates: start: 20200320, end: 20200429
  2. IVERMECTIN [Suspect]
     Active Substance: IVERMECTIN
     Indication: Acarodermatitis
     Dosage: 12 MG, SINGLE
     Route: 048
     Dates: start: 20200420, end: 20200420
  3. IVERMECTIN [Suspect]
     Active Substance: IVERMECTIN
     Dosage: 12 MG, SINGLE
     Route: 048
     Dates: start: 20200429, end: 20200429
  4. LEVOCETIRIZINE [Concomitant]
     Active Substance: LEVOCETIRIZINE
     Indication: Acarodermatitis
     Dosage: 5 MG, 3X/DAY
     Route: 048
     Dates: start: 20200420, end: 20200429

REACTIONS (2)
  - Prothrombin time prolonged [Recovered/Resolved]
  - International normalised ratio increased [Recovered/Resolved]

NARRATIVE: CASE EVENT DATE: 20200429
